FAERS Safety Report 19502955 (Version 1)
Quarter: 2021Q3

REPORT INFORMATION
  Report Type: Spontaneous
  Country: ES (occurrence: ES)
  Receive Date: 20210707
  Receipt Date: 20210707
  Transmission Date: 20211014
  Serious: Yes (Other)
  Sender: FDA-Public Use
  Company Number: ES-CELLTRION INC.-2021ES003421

PATIENT

DRUGS (9)
  1. METHOTREXATE. [Suspect]
     Active Substance: METHOTREXATE
     Indication: IMMUNOSUPPRESSANT DRUG THERAPY
     Route: 065
  2. METHYLPREDNISOLONE. [Concomitant]
     Active Substance: METHYLPREDNISOLONE
     Indication: PREMEDICATION
     Dosage: 100 MG
     Route: 042
  3. RITUXIMAB (UNKNOWN) [Suspect]
     Active Substance: RITUXIMAB
     Dosage: 1 GRAM
     Route: 041
  4. RITUXIMAB (UNKNOWN) [Suspect]
     Active Substance: RITUXIMAB
     Indication: RHEUMATOID ARTHRITIS
     Dosage: 1 GRAM, CYCLIC SEPARATED BY A 2?WEEK INTERVAL (DAYS 1 AND 15)
     Route: 042
  5. PREDNISONE. [Suspect]
     Active Substance: PREDNISONE
     Indication: RHEUMATOID ARTHRITIS
  6. PREDNISONE. [Suspect]
     Active Substance: PREDNISONE
     Indication: IMMUNOSUPPRESSANT DRUG THERAPY
  7. RITUXIMAB (UNKNOWN) [Suspect]
     Active Substance: RITUXIMAB
     Indication: INTERSTITIAL LUNG DISEASE
     Dosage: 1 GRAM, CYCLIC (SEPARATED BY A 2?WEEK INTERVAL (DAYS 1 AND 15)
     Route: 042
  8. PREDNISONE. [Suspect]
     Active Substance: PREDNISONE
     Indication: INTERSTITIAL LUNG DISEASE
     Dosage: MEAN DOSE OF 13MG/DAY (IQR 5?15MG/D)
     Route: 065
  9. MYCOPHENOLATE MOFETIL. [Suspect]
     Active Substance: MYCOPHENOLATE MOFETIL
     Indication: IMMUNOSUPPRESSANT DRUG THERAPY
     Route: 065

REACTIONS (3)
  - Drug effective for unapproved indication [Unknown]
  - Off label use [Unknown]
  - Respiratory tract infection [Unknown]
